FAERS Safety Report 5600820-1 (Version None)
Quarter: 2008Q1

REPORT INFORMATION
  Report Type: 
  Country: None (occurrence: None)
  Receive Date: 20080123
  Receipt Date: 20080111
  Transmission Date: 20080703
  Serious: Yes (Hospitalization, Other)
  Sender: FDA-Public Use
  Company Number: US-PFIZER INC-2008004520

PATIENT
  Sex: Male
  Weight: 63.5 kg

DRUGS (4)
  1. DILANTIN [Suspect]
     Indication: GRAND MAL CONVULSION
     Dosage: DAILY DOSE:300MG
  2. NEURONTIN [Suspect]
  3. PHENYTOIN [Suspect]
  4. DEPAKOTE [Suspect]

REACTIONS (5)
  - ADVERSE DRUG REACTION [None]
  - GRAND MAL CONVULSION [None]
  - MOVEMENT DISORDER [None]
  - ROAD TRAFFIC ACCIDENT [None]
  - TREMOR [None]
